FAERS Safety Report 5250233-X (Version None)
Quarter: 2007Q1

REPORT INFORMATION
  Report Type: 
  Country: None (occurrence: None)
  Receive Date: 20070228
  Receipt Date: 20060303
  Transmission Date: 20070707
  Serious: No
  Sender: FDA-Public Use
  Company Number: US-GLAXOSMITHKLINE-A0596003A

PATIENT
  Age: 23 Year
  Sex: Female

DRUGS (6)
  1. LAMICTAL [Suspect]
     Indication: BIPOLAR DISORDER
     Dosage: 150MG PER DAY
     Route: 048
     Dates: start: 20060101
  2. ALLEGRA [Concomitant]
  3. SINGULAIR [Concomitant]
  4. WELLBUTRIN XL [Concomitant]
  5. SEROQUEL [Concomitant]
  6. BIRTH CONTROL PILL [Concomitant]

REACTIONS (1)
  - METRORRHAGIA [None]
